FAERS Safety Report 11803363 (Version 5)
Quarter: 2016Q1

REPORT INFORMATION
  Report Type: Report from Study
  Country: JP (occurrence: JP)
  Receive Date: 20151204
  Receipt Date: 20160219
  Transmission Date: 20160525
  Serious: Yes (Hospitalization)
  Sender: FDA-Public Use
  Company Number: JP-EISAI MEDICAL RESEARCH-EC-2015-012483

PATIENT
  Age: 59 Year
  Sex: Male
  Weight: 93 kg

DRUGS (34)
  1. LENVATINIB [Suspect]
     Active Substance: LENVATINIB
     Indication: RENAL CELL CARCINOMA
     Route: 048
     Dates: start: 20151021, end: 20151124
  2. OXINORM [Concomitant]
     Active Substance: OXYCODONE HYDROCHLORIDE
  3. DENOTAS [Concomitant]
     Active Substance: CALCIUM CARBONATE\CHOLECALCIFEROL\MAGNESIUM CARBONATE
  4. INDOMETACIN [Concomitant]
     Active Substance: INDOMETHACIN
  5. LEVOFLOXACIN HEMIHYDRATE [Concomitant]
     Active Substance: LEVOFLOXACIN
  6. AFINITOR [Suspect]
     Active Substance: EVEROLIMUS
     Indication: RENAL CELL CARCINOMA
     Route: 048
     Dates: start: 20151021, end: 20151124
  7. AFINITOR [Suspect]
     Active Substance: EVEROLIMUS
     Route: 048
     Dates: start: 20151229, end: 20160113
  8. AMLODIPINE [Concomitant]
     Active Substance: AMLODIPINE BESYLATE
  9. JANUVIA [Concomitant]
     Active Substance: SITAGLIPTIN PHOSPHATE
  10. CELECOX [Concomitant]
     Active Substance: CELECOXIB
  11. LENVATINIB [Suspect]
     Active Substance: LENVATINIB
     Route: 048
     Dates: start: 20151229, end: 20160113
  12. LIPITOR [Concomitant]
     Active Substance: ATORVASTATIN CALCIUM
  13. BLOPRESS [Concomitant]
     Active Substance: CANDESARTAN CILEXETIL
  14. OXYCODONE [Concomitant]
     Active Substance: OXYCODONE
  15. PRIMPERAN [Concomitant]
     Active Substance: METOCLOPRAMIDE HYDROCHLORIDE
  16. HIRUDOID [Concomitant]
     Active Substance: GLYCOSAMINOGLYCANS
  17. FLUITRAN [Concomitant]
     Active Substance: TRICHLORMETHIAZIDE
  18. LENDORMIN D [Concomitant]
     Active Substance: BROTIZOLAM
  19. DERMOVATE [Concomitant]
     Active Substance: CLOBETASOL
  20. LENVATINIB [Suspect]
     Active Substance: LENVATINIB
     Route: 048
     Dates: start: 20160120
  21. AZUNOL GARGLE LIQUID [Concomitant]
  22. LYRICA [Concomitant]
     Active Substance: PREGABALIN
  23. PURSENNID [Concomitant]
     Active Substance: SENNOSIDES A AND B
  24. RANMARK [Concomitant]
     Active Substance: DENOSUMAB
  25. AMARYL [Concomitant]
     Active Substance: GLIMEPIRIDE
  26. MOHRUS TAPE [Concomitant]
     Active Substance: KETOPROFEN
  27. TENORMIN [Concomitant]
     Active Substance: ATENOLOL
  28. AFINITOR [Suspect]
     Active Substance: EVEROLIMUS
     Route: 048
     Dates: start: 20160120
  29. LANSOPRAZOLE. [Concomitant]
     Active Substance: LANSOPRAZOLE
  30. MAGLAX [Concomitant]
     Active Substance: MAGNESIUM OXIDE
  31. CALONAL [Concomitant]
     Active Substance: ACETAMINOPHEN
  32. GENTACIN [Concomitant]
     Active Substance: GENTAMICIN SULFATE
  33. GASMOTIN [Concomitant]
     Active Substance: MOSAPRIDE CITRATE
  34. AZUNOL [Concomitant]
     Active Substance: SODIUM GUALENATE

REACTIONS (2)
  - Decreased appetite [Not Recovered/Not Resolved]
  - Dehydration [Recovered/Resolved]

NARRATIVE: CASE EVENT DATE: 20151127
